FAERS Safety Report 9216505 (Version 3)
Quarter: 2013Q3

REPORT INFORMATION
  Report Type: Spontaneous
  Country: US (occurrence: None)
  Receive Date: 20130402
  Receipt Date: 20130813
  Transmission Date: 20140515
  Serious: Yes (Hospitalization)
  Sender: FDA-Public Use
  Company Number: 2013P1003914

PATIENT
  Age: 64 Year
  Sex: Male

DRUGS (4)
  1. INFUMORPH [Suspect]
     Indication: PAIN
  2. INFUMORPH [Suspect]
     Indication: POST LAMINECTOMY SYNDROME
  3. MARCAINE [Suspect]
  4. CLONIDINE [Suspect]

REACTIONS (9)
  - Device power source issue [None]
  - Drug withdrawal syndrome [None]
  - Inadequate analgesia [None]
  - Underdose [None]
  - Expired device used [None]
  - Procedural haemorrhage [None]
  - Influenza like illness [None]
  - Device battery issue [None]
  - Incorrect dose administered by device [None]
